FAERS Safety Report 7827514-6 (Version None)
Quarter: 2011Q4

REPORT INFORMATION
  Report Type: 
  Country: None (occurrence: None)
  Receive Date: 20111020
  Receipt Date: 20111007
  Transmission Date: 20120403
  Serious: Yes (Other)
  Sender: FDA-Public Use
  Company Number: PHEH2011US06293

PATIENT
  Age: 12 Year
  Sex: Female

DRUGS (5)
  1. TEGRETOL [Suspect]
     Dosage: 200 MG, TID
  2. TEGRETOL [Suspect]
     Dosage: 150 MG, TID
  3. OXCARBAZEPINE [Suspect]
  4. LEVOTHYROXINE SODIUM [Concomitant]
  5. TEGRETOL [Suspect]
     Indication: CONVULSION
     Dosage: 100 MG, TID
     Dates: start: 20040101

REACTIONS (5)
  - COMA [None]
  - AMMONIA INCREASED [None]
  - CONVULSION [None]
  - DRUG HYPERSENSITIVITY [None]
  - CONFUSIONAL STATE [None]
